FAERS Safety Report 18677109 (Version 1)
Quarter: 2020Q4

REPORT INFORMATION
  Report Type: Spontaneous
  Country: DE (occurrence: DE)
  Receive Date: 20201229
  Receipt Date: 20201229
  Transmission Date: 20210114
  Serious: Yes (Other)
  Sender: FDA-Public Use
  Company Number: DE-ALLERGAN-2049964US

PATIENT
  Sex: Female

DRUGS (5)
  1. PILOCARPINE. [Concomitant]
     Active Substance: PILOCARPINE
  2. DORZOLAMIDE TIMOLOL [Concomitant]
     Active Substance: DORZOLAMIDE
  3. TAFLUPROST [Concomitant]
     Active Substance: TAFLUPROST
  4. PREDNISOLONE ACETATE. [Concomitant]
     Active Substance: PREDNISOLONE ACETATE
  5. ALPHAGAN P [Suspect]
     Active Substance: BRIMONIDINE TARTRATE
     Indication: EXFOLIATION GLAUCOMA

REACTIONS (2)
  - Off label use [Unknown]
  - Iridocyclitis [Recovered/Resolved]
